FAERS Safety Report 25741162 (Version 1)
Quarter: 2025Q3

REPORT INFORMATION
  Report Type: Spontaneous
  Country: US (occurrence: US)
  Receive Date: 20250829
  Receipt Date: 20250829
  Transmission Date: 20251021
  Serious: No
  Sender: ABBVIE
  Company Number: US-ABBVIE-6437071

PATIENT
  Age: 79 Year
  Sex: Male

DRUGS (2)
  1. DURYSTA [Suspect]
     Active Substance: BIMATOPROST
     Indication: Intraocular pressure increased
     Route: 065
     Dates: start: 20250420, end: 20250420
  2. DURYSTA [Suspect]
     Active Substance: BIMATOPROST
     Route: 065
     Dates: start: 20250512, end: 20250512

REACTIONS (2)
  - Intraocular pressure increased [Unknown]
  - Drug ineffective [Not Recovered/Not Resolved]

NARRATIVE: CASE EVENT DATE: 20250101
